FAERS Safety Report 7056840-6 (Version None)
Quarter: 2010Q4

REPORT INFORMATION
  Report Type: 
  Country: None (occurrence: None)
  Receive Date: 20101022
  Receipt Date: 20100714
  Transmission Date: 20110411
  Serious: No
  Sender: FDA-Public Use
  Company Number: A0870450A

PATIENT
  Age: 15 Year
  Sex: Male

DRUGS (2)
  1. DUAC [Suspect]
     Indication: ACNE
     Dosage: 1APP PER DAY
     Route: 061
     Dates: start: 20100501, end: 20100601
  2. ALLERGY MEDICATION [Concomitant]

REACTIONS (2)
  - ACNE [None]
  - DRUG INEFFECTIVE [None]
